FAERS Safety Report 17946824 (Version 5)
Quarter: 2020Q3

REPORT INFORMATION
  Report Type: Spontaneous
  Country: US (occurrence: US)
  Receive Date: 20200625
  Receipt Date: 20200914
  Transmission Date: 20201103
  Serious: Yes (Other)
  Sender: FDA-Public Use
  Company Number: US-PROVENSIS LTD. (PART OF THE BOSTON SCIENTIFIC GROUP)-2086685

PATIENT
  Age: 59 Year
  Sex: Female
  Weight: 88.5 kg

DRUGS (2)
  1. VARITHENA [Suspect]
     Active Substance: POLIDOCANOL
     Indication: PERIPHERAL VENOUS DISEASE
     Dates: start: 20200106, end: 20200210
  2. VARITHENA [Suspect]
     Active Substance: POLIDOCANOL

REACTIONS (5)
  - Rash [Recovered/Resolved]
  - Rash [Recovered/Resolved]
  - Skin irritation [Recovered/Resolved]
  - Skin discolouration [Recovered/Resolved]
  - Post inflammatory pigmentation change [Recovered/Resolved]

NARRATIVE: CASE EVENT DATE: 20200222
